FAERS Safety Report 17727712 (Version 1)
Quarter: 2020Q2

REPORT INFORMATION
  Report Type: Spontaneous
  Country: US (occurrence: US)
  Receive Date: 20200429
  Receipt Date: 20200429
  Transmission Date: 20200714
  Serious: Yes (Other)
  Sender: FDA-Public Use
  Company Number: None

PATIENT
  Age: 55 Year
  Sex: Female
  Weight: 178.72 kg

DRUGS (9)
  1. FAMOTIDINE 20 MG [Suspect]
     Active Substance: FAMOTIDINE
     Indication: GASTROOESOPHAGEAL REFLUX DISEASE
     Dosage: ?          QUANTITY:1 DF DOSAGE FORM;?
     Route: 048
     Dates: start: 20191109, end: 20191125
  2. ATORVASTATIN [Concomitant]
     Active Substance: ATORVASTATIN
  3. NEBULIZER [Concomitant]
     Active Substance: DEVICE
  4. TRAMODOL [Concomitant]
     Active Substance: TRAMADOL
  5. OXYGEN AT NIGHT [Concomitant]
  6. WARFARIN [Concomitant]
     Active Substance: WARFARIN
  7. IRON [Concomitant]
     Active Substance: IRON
  8. CPAP MACHINE [Concomitant]
  9. TYLENOL [Concomitant]
     Active Substance: ACETAMINOPHEN

REACTIONS (3)
  - Pain [None]
  - Myalgia [None]
  - Arthralgia [None]

NARRATIVE: CASE EVENT DATE: 20191122
